FAERS Safety Report 7006403-3 (Version None)
Quarter: 2010Q3

REPORT INFORMATION
  Report Type: 
  Country: None (occurrence: None)
  Receive Date: 20100909
  Receipt Date: 20100831
  Transmission Date: 20110219
  Serious: Yes (Life-Threatening, Hospitalization)
  Sender: FDA-Public Use
  Company Number: 2010SP046811

PATIENT
  Age: 25 Year
  Sex: Male
  Weight: 71 kg

DRUGS (7)
  1. VECURONIUM BROMIDE (VECURONIUM BROMIDE /00600002/) [Suspect]
     Indication: ANAESTHESIA PROCEDURE
     Dosage: 4 MD;ONCE
  2. ATROPINE [Suspect]
     Indication: ANAESTHESIA PROCEDURE
     Dosage: 0.5 MG; ONCE
  3. MIDAZOLAM HYDROCHLORIDE [Suspect]
     Indication: ANAESTHESIA PROCEDURE
     Dosage: 2 MG;ONCE;
  4. FENTANYL [Suspect]
     Indication: ANAESTHESIA PROCEDURE
     Dosage: 0.2 MG;ONCE
  5. THIOPENTAL SODIUM [Suspect]
     Indication: ANAESTHESIA PROCEDURE
     Dosage: 250 MG;ONCE
  6. SUXAMETONIUM (SUXAMETHONIUM) [Suspect]
     Indication: ANAESTHESIA PROCEDURE
     Dosage: 90 MG;ONCE;
  7. NEOSTYGMINUM (NEOSTIGMINE) [Suspect]
     Indication: ANAESTHESIA PROCEDURE
     Dosage: 0.5 MG; ONCE

REACTIONS (3)
  - ACUTE PULMONARY OEDEMA [None]
  - ACUTE RESPIRATORY FAILURE [None]
  - PULMONARY HAEMORRHAGE [None]
